FAERS Safety Report 23780005 (Version 2)
Quarter: 2025Q3

REPORT INFORMATION
  Report Type: Spontaneous
  Country: EU (occurrence: EU)
  Receive Date: 20240424
  Receipt Date: 20250922
  Transmission Date: 20251021
  Serious: Yes (Other)
  Sender: SUNOVION
  Company Number: EU-UCBSA-2023053448

PATIENT
  Age: 60 Year
  Sex: Female

DRUGS (26)
  1. ESLICARBAZEPINE ACETATE [Suspect]
     Active Substance: ESLICARBAZEPINE ACETATE
     Indication: Epilepsy
  2. PHENOBARBITAL [Suspect]
     Active Substance: PHENOBARBITAL
     Indication: Epilepsy
  3. CENOBAMATE [Suspect]
     Active Substance: CENOBAMATE
     Indication: Epilepsy
  4. CENOBAMATE [Suspect]
     Active Substance: CENOBAMATE
     Dosage: 250 MILLIGRAM/DAY
  5. PRIMIDONE [Suspect]
     Active Substance: PRIMIDONE
     Indication: Epilepsy
  6. PRIMIDONE [Suspect]
     Active Substance: PRIMIDONE
     Dosage: 250 MILLIGRAM PER DAY
  7. CARBAMAZEPINE [Suspect]
     Active Substance: CARBAMAZEPINE
     Indication: Epilepsy
  8. PHENYTOIN [Suspect]
     Active Substance: PHENYTOIN
     Indication: Epilepsy
  9. PERAMPANEL [Suspect]
     Active Substance: PERAMPANEL
     Indication: Epilepsy
  10. PERAMPANEL [Suspect]
     Active Substance: PERAMPANEL
     Dosage: 8 MILLIGRAM PER DAY
  11. TOPIRAMATE [Suspect]
     Active Substance: TOPIRAMATE
     Indication: Epilepsy
  12. LEVETIRACETAM [Suspect]
     Active Substance: LEVETIRACETAM
     Indication: Epilepsy
  13. PREGABALIN [Suspect]
     Active Substance: PREGABALIN
     Indication: Epilepsy
  14. CLOBAZAM [Suspect]
     Active Substance: CLOBAZAM
     Indication: Epilepsy
  15. CLOBAZAM [Suspect]
     Active Substance: CLOBAZAM
     Dosage: 2.5 MILLIGRAM PER DAY
  16. ZONISAMIDE [Suspect]
     Active Substance: ZONISAMIDE
     Indication: Epilepsy
  17. LACOSAMIDE [Suspect]
     Active Substance: LACOSAMIDE
     Indication: Epilepsy
  18. LACOSAMIDE [Suspect]
     Active Substance: LACOSAMIDE
  19. LACOSAMIDE [Suspect]
     Active Substance: LACOSAMIDE
  20. VIGABATRIN [Suspect]
     Active Substance: VIGABATRIN
     Indication: Epilepsy
  21. GABAPENTIN [Suspect]
     Active Substance: GABAPENTIN
     Indication: Epilepsy
  22. LAMOTRIGINE [Suspect]
     Active Substance: LAMOTRIGINE
     Indication: Epilepsy
  23. BRIVARACETAM [Suspect]
     Active Substance: BRIVARACETAM
     Indication: Epilepsy
  24. BRIVARACETAM [Suspect]
     Active Substance: BRIVARACETAM
     Dosage: 150 MILLIGRAM PER DAY
  25. VALPROIC ACID [Suspect]
     Active Substance: VALPROIC ACID
     Indication: Epilepsy
  26. CLONAZEPAM [Suspect]
     Active Substance: CLONAZEPAM
     Indication: Epilepsy

REACTIONS (6)
  - Hallucination [Unknown]
  - Herpes zoster [Unknown]
  - Mood swings [Unknown]
  - Multiple-drug resistance [Unknown]
  - Rash [Unknown]
  - Memory impairment [Unknown]
